FAERS Safety Report 9152664 (Version 1)
Quarter: 2013Q1

REPORT INFORMATION
  Report Type: Spontaneous
  Country: US (occurrence: US)
  Receive Date: 20130308
  Receipt Date: 20130308
  Transmission Date: 20140127
  Serious: No
  Sender: FDA-Public Use
  Company Number: US-B.I. PHARMACEUTICALS,INC./RIDGEFIELD-2013-BI-05895BP

PATIENT
  Sex: Female

DRUGS (22)
  1. SPIRIVA [Suspect]
     Dosage: 18 MCG
     Route: 055
     Dates: start: 20130116
  2. PLAVIX [Concomitant]
     Dosage: 75 MG
     Route: 048
  3. TRILIPIX [Concomitant]
     Dosage: 135 MG
     Route: 048
  4. REQUIP [Concomitant]
     Indication: RESTLESS LEGS SYNDROME
     Dosage: 1 MG
     Route: 048
  5. PROTONIX [Concomitant]
     Dosage: 40 MG
     Route: 048
  6. LISINOPRIL [Concomitant]
     Indication: HYPERTENSION
     Dosage: 40 MG
     Route: 048
  7. FLEXERIL [Concomitant]
     Dosage: 30 MG
     Route: 048
  8. PROAIR [Concomitant]
     Route: 055
  9. CRESTOR [Concomitant]
     Indication: BLOOD CHOLESTEROL INCREASED
     Dosage: 10 MG
     Route: 048
  10. GLIMEPIRIDE [Concomitant]
     Indication: DIABETES MELLITUS
     Dosage: 4 MG
     Route: 048
  11. LASIX [Concomitant]
     Dosage: 40 MG
     Route: 048
  12. RANITIDINE [Concomitant]
     Indication: GASTROOESOPHAGEAL REFLUX DISEASE
     Dosage: 300 MG
     Route: 048
  13. TOPROL [Concomitant]
     Dosage: 25 MG
     Route: 048
  14. TIMOLOL EYE DROPS [Concomitant]
     Indication: GLAUCOMA
  15. ARTIFICIAL TEARS [Concomitant]
  16. VITAMIN B12 [Concomitant]
     Route: 030
  17. TRAZADONE [Concomitant]
     Dosage: 50 MG
     Route: 048
  18. LYRICA [Concomitant]
     Dosage: 300 MG
     Route: 048
  19. ASPIRIN [Concomitant]
     Dosage: 81 MG
     Route: 048
  20. JANUMET [Concomitant]
     Route: 048
  21. LORTAB [Concomitant]
     Indication: INTERVERTEBRAL DISC PROTRUSION
     Dosage: 10 MG
     Route: 048
  22. LEXAPRO [Concomitant]
     Dosage: 10 MG
     Route: 048

REACTIONS (2)
  - Cough [Not Recovered/Not Resolved]
  - Nausea [Not Recovered/Not Resolved]
